FAERS Safety Report 5894163-9 (Version None)
Quarter: 2008Q3

REPORT INFORMATION
  Report Type: 
  Country: None (occurrence: None)
  Receive Date: 20080923
  Receipt Date: 20080212
  Transmission Date: 20090109
  Serious: No
  Sender: FDA-Public Use
  Company Number: US-ASTRAZENECA-2008UW02941

PATIENT
  Sex: Female

DRUGS (3)
  1. SEROQUEL [Suspect]
     Route: 048
  2. PROZAC [Concomitant]
  3. LEXAPRO [Concomitant]

REACTIONS (2)
  - HYPOAESTHESIA [None]
  - STOMACH DISCOMFORT [None]
